FAERS Safety Report 7327201-7 (Version None)
Quarter: 2011Q1

REPORT INFORMATION
  Report Type: 
  Country: None (occurrence: None)
  Receive Date: 20110302
  Receipt Date: 20110119
  Transmission Date: 20110831
  Serious: Yes (Death, Other)
  Sender: FDA-Public Use
  Company Number: US-BAXTER-2010BH026301

PATIENT
  Age: 84 Year
  Sex: Male

DRUGS (21)
  1. HEPARIN SODIUM INJECTION [Suspect]
     Indication: THROMBOSIS PROPHYLAXIS
     Route: 058
     Dates: start: 20080303, end: 20080311
  2. LEVOBUNOLOL [Concomitant]
     Indication: PRODUCT USED FOR UNKNOWN INDICATION
     Route: 047
  3. NAMENDA [Concomitant]
     Indication: PRODUCT USED FOR UNKNOWN INDICATION
     Route: 065
  4. GATIFLOXACIN [Concomitant]
     Indication: PRODUCT USED FOR UNKNOWN INDICATION
     Route: 047
  5. ARICEPT [Concomitant]
     Indication: PRODUCT USED FOR UNKNOWN INDICATION
     Route: 065
  6. CEFTRIAXONE SODIUM [Concomitant]
     Indication: PRODUCT USED FOR UNKNOWN INDICATION
     Route: 065
  7. LEXAPRO [Concomitant]
     Indication: PRODUCT USED FOR UNKNOWN INDICATION
     Route: 065
  8. HALOPERIDOL [Concomitant]
     Indication: PRODUCT USED FOR UNKNOWN INDICATION
     Route: 065
  9. ASA [Concomitant]
     Indication: PRODUCT USED FOR UNKNOWN INDICATION
     Route: 065
  10. RISPERDAL [Concomitant]
     Indication: PRODUCT USED FOR UNKNOWN INDICATION
     Route: 065
  11. ACYCLOVIR [Concomitant]
     Indication: PRODUCT USED FOR UNKNOWN INDICATION
     Route: 065
  12. HEPARIN SODIUM INJECTION [Suspect]
     Route: 058
     Dates: start: 20080427, end: 20080503
  13. ERYTHROMYCIN [Concomitant]
     Indication: PRODUCT USED FOR UNKNOWN INDICATION
     Route: 065
  14. VANCOMYCIN [Concomitant]
     Route: 065
  15. CELEXA [Concomitant]
     Indication: PRODUCT USED FOR UNKNOWN INDICATION
     Route: 065
  16. OXYBUTYNIN [Concomitant]
     Indication: PRODUCT USED FOR UNKNOWN INDICATION
     Route: 065
  17. HEPARIN SODIUM INJECTION [Suspect]
     Route: 058
     Dates: start: 20080330, end: 20080408
  18. VANCOMYCIN [Concomitant]
     Indication: PRODUCT USED FOR UNKNOWN INDICATION
     Route: 065
  19. PNEUMOCOCCAL VACCINE [Concomitant]
     Indication: PRODUCT USED FOR UNKNOWN INDICATION
     Route: 065
  20. SODIUM CHLORIDE [Concomitant]
     Indication: PRODUCT USED FOR UNKNOWN INDICATION
     Route: 042
  21. ARICEPT [Concomitant]
     Route: 065

REACTIONS (23)
  - DEMENTIA [None]
  - CHROMATURIA [None]
  - DYSARTHRIA [None]
  - BLOOD CREATININE INCREASED [None]
  - ABDOMINAL PAIN [None]
  - PYREXIA [None]
  - SEPSIS [None]
  - DIARRHOEA [None]
  - NAUSEA [None]
  - HYPOTENSION [None]
  - ASTHENIA [None]
  - PSEUDOMEMBRANOUS COLITIS [None]
  - ATRIAL FIBRILLATION [None]
  - TACHYCARDIA [None]
  - MENTAL STATUS CHANGES [None]
  - LETHARGY [None]
  - DEHYDRATION [None]
  - URINARY RETENTION [None]
  - DECREASED APPETITE [None]
  - CLOSTRIDIUM DIFFICILE COLITIS [None]
  - BLOOD UREA INCREASED [None]
  - LEUKOCYTOSIS [None]
  - MUSCLE SPASMS [None]
